FAERS Safety Report 8895986 (Version 1)
Quarter: 2012Q4

REPORT INFORMATION
  Report Type: 
  Country: DE (occurrence: DE)
  Receive Date: 20121108
  Receipt Date: 20121108
  Transmission Date: 20130627
  Serious: Yes (Hospitalization)
  Sender: FDA-Public Use
  Company Number: DE-PFIZER INC-2012278416

PATIENT
  Age: 55 Year
  Sex: Male
  Weight: 80 kg

DRUGS (2)
  1. LYRICA [Suspect]
     Indication: SUPPLEMENTATION THERAPY
     Dosage: 75 mg, 2x/day
     Route: 048
     Dates: start: 201111, end: 20120106
  2. TARGIN [Concomitant]
     Indication: PAIN NOS
     Dosage: 10 mg, 3x/day
     Route: 048
     Dates: start: 201110

REACTIONS (6)
  - Anxiety [Not Recovered/Not Resolved]
  - Agitation [Not Recovered/Not Resolved]
  - Hypertonia [Not Recovered/Not Resolved]
  - Speech disorder [Not Recovered/Not Resolved]
  - Panic reaction [Not Recovered/Not Resolved]
  - Staring [Not Recovered/Not Resolved]
